FAERS Safety Report 4425568-0 (Version None)
Quarter: 2004Q3

REPORT INFORMATION
  Report Type: 
  Country: None (occurrence: None)
  Receive Date: 20040810
  Receipt Date: 20040724
  Transmission Date: 20050211
  Serious: Yes (Death, Hospitalization)
  Sender: FDA-Public Use
  Company Number: A03200402456

PATIENT
  Age: 38 Year
  Sex: Female

DRUGS (5)
  1. PLAVIX [Suspect]
     Indication: ANGIOPLASTY
     Dosage: 75 MG QD - ORAL
     Route: 048
     Dates: start: 20030428, end: 20030507
  2. PLAVIX [Suspect]
     Indication: CORONARY ARTERY OCCLUSION
     Dosage: 75 MG QD - ORAL
     Route: 048
     Dates: start: 20030428, end: 20030507
  3. PLAVIX [Suspect]
     Indication: MYOCARDIAL INFARCTION
     Dosage: 75 MG QD - ORAL
     Route: 048
     Dates: start: 20030428, end: 20030507
  4. METOPROLOL SUCCINATE [Concomitant]
  5. ASPIRIN [Concomitant]

REACTIONS (8)
  - BLOOD BILIRUBIN INCREASED [None]
  - BLOOD PRESSURE DIASTOLIC INCREASED [None]
  - CHEST PAIN [None]
  - HEART RATE INCREASED [None]
  - NAUSEA [None]
  - RESPIRATORY DISTRESS [None]
  - THROMBOTIC THROMBOCYTOPENIC PURPURA [None]
  - VOMITING [None]
